FAERS Safety Report 14343243 (Version 1)
Quarter: 2017Q4

REPORT INFORMATION
  Report Type: Spontaneous
  Country: US (occurrence: US)
  Receive Date: 20171229
  Receipt Date: 20171229
  Transmission Date: 20180321
  Serious: Yes (Death)
  Sender: FDA-Public Use
  Company Number: None

PATIENT
  Age: 91 Year
  Sex: Female
  Weight: 65.25 kg

DRUGS (16)
  1. SENEXON [Concomitant]
     Active Substance: SENNOSIDES A AND B
  2. CIPROFLOXACIN. [Concomitant]
     Active Substance: CIPROFLOXACIN
  3. METFORMIN [Concomitant]
     Active Substance: METFORMIN HYDROCHLORIDE
  4. HEARING AID [Concomitant]
  5. AMLODIPINE BESYLATE. [Concomitant]
     Active Substance: AMLODIPINE BESYLATE
  6. BROMOCRIPTINE [Concomitant]
     Active Substance: BROMOCRIPTINE
  7. BISACODYL. [Concomitant]
     Active Substance: BISACODYL
  8. ASPIRIN. [Concomitant]
     Active Substance: ASPIRIN
  9. DOK [Concomitant]
     Active Substance: DOCUSATE SODIUM
  10. LEVOTHYROXINE. [Concomitant]
     Active Substance: LEVOTHYROXINE
  11. VALSARTAN. [Concomitant]
     Active Substance: VALSARTAN
  12. VITAMIN B [Concomitant]
     Active Substance: VITAMIN B
  13. VITAMIN B12 [Concomitant]
     Active Substance: CYANOCOBALAMIN
  14. MYRBETRIQ [Suspect]
     Active Substance: MIRABEGRON
     Indication: INCONTINENCE
     Route: 048
     Dates: start: 20171216, end: 20171219
  15. MIRALAX [Concomitant]
     Active Substance: POLYETHYLENE GLYCOL 3350
  16. PACEMAKER [Concomitant]

REACTIONS (1)
  - Cerebral haemorrhage [None]

NARRATIVE: CASE EVENT DATE: 20171219
